FAERS Safety Report 8173265-0 (Version None)
Quarter: 2012Q1

REPORT INFORMATION
  Report Type: 
  Country: None (occurrence: None)
  Receive Date: 20120223
  Receipt Date: 20120209
  Transmission Date: 20120608
  Serious: Yes (Death, Life-Threatening, Hospitalization, Other)
  Sender: FDA-Public Use
  Company Number: 2012MA001860

PATIENT
  Sex: Female
  Weight: 60.782 kg

DRUGS (31)
  1. ALTACE [Concomitant]
  2. ASPIRIN [Concomitant]
  3. CELEBREX [Concomitant]
  4. IMIPRAMINE [Concomitant]
  5. LIPITOR [Concomitant]
  6. TENORMIN [Concomitant]
  7. CLONAZEPAM [Concomitant]
  8. KLONOPIN [Concomitant]
  9. ACIPHEX [Concomitant]
  10. MACRODANTIN [Concomitant]
  11. NITROFURANTOIN [Concomitant]
  12. NORPRAMINE [Concomitant]
  13. RANITIDINE [Concomitant]
  14. SYNTHROID [Concomitant]
  15. WARFARIN SODIUM [Concomitant]
  16. ATROPINE [Concomitant]
  17. KLOR-CON [Concomitant]
  18. MACROBID [Concomitant]
  19. PROTONIX [Concomitant]
  20. DIGOXIN [Suspect]
     Dosage: 0.125 MG; OD; PO
     Route: 048
     Dates: start: 20061006, end: 20070919
  21. EPINEPHRINE [Concomitant]
  22. NORTRIPTYLINE HCL [Concomitant]
  23. DESIPRAMINE HCL [Concomitant]
  24. MICRO-K [Concomitant]
  25. NITROGLYCERIN [Concomitant]
  26. PRILOSEC [Concomitant]
  27. ATENOLOL [Concomitant]
  28. CRESTOR [Concomitant]
  29. COUMADIN [Concomitant]
  30. NORVASC [Concomitant]
  31. ZANTAC [Concomitant]

REACTIONS (32)
  - ARTERIOSCLEROSIS [None]
  - ANGIOPLASTY [None]
  - LOSS OF CONSCIOUSNESS [None]
  - ASTHENIA [None]
  - HYPOTONIA [None]
  - ECONOMIC PROBLEM [None]
  - HYPOTHYROIDISM [None]
  - MACULAR DEGENERATION [None]
  - INTERMITTENT CLAUDICATION [None]
  - PAIN [None]
  - FATIGUE [None]
  - DISEASE PROGRESSION [None]
  - GASTROOESOPHAGEAL REFLUX DISEASE [None]
  - HYPERTENSION [None]
  - RENAL FAILURE [None]
  - RENAL FAILURE CHRONIC [None]
  - MYOCARDIAL ISCHAEMIA [None]
  - CAROTID BRUIT [None]
  - PUPIL FIXED [None]
  - JOINT SWELLING [None]
  - ARTHRITIS [None]
  - CORONARY ARTERY DISEASE [None]
  - ATRIAL FIBRILLATION [None]
  - URINARY TRACT INFECTION [None]
  - MULTIPLE INJURIES [None]
  - CARDIAC ARREST [None]
  - AREFLEXIA [None]
  - AGONAL RHYTHM [None]
  - ANAEMIA [None]
  - ILL-DEFINED DISORDER [None]
  - ARRHYTHMIA [None]
  - HYPERLIPIDAEMIA [None]
